FAERS Safety Report 5715345-2 (Version None)
Quarter: 2008Q2

REPORT INFORMATION
  Report Type: 
  Country: None (occurrence: None)
  Receive Date: 20080423
  Receipt Date: 20080411
  Transmission Date: 20081010
  Serious: Yes (Other)
  Sender: FDA-Public Use
  Company Number: US-PFIZER INC-2008032241

PATIENT
  Sex: Female
  Weight: 76.818 kg

DRUGS (13)
  1. DETROL LA [Suspect]
     Indication: HYPERTONIC BLADDER
     Route: 048
  2. XANAX [Suspect]
  3. NEXIUM [Concomitant]
  4. CELEXA [Concomitant]
  5. ALL OTHER THERAPEUTIC PRODUCTS [Concomitant]
  6. RELAFEN [Concomitant]
  7. LIPITOR [Concomitant]
  8. LISINOPRIL [Concomitant]
  9. ARICEPT [Concomitant]
  10. DALMANE [Concomitant]
  11. PRIMIDONE [Concomitant]
  12. SINEMET [Concomitant]
     Dosage: TEXT:50/200
  13. PERCOCET [Concomitant]

REACTIONS (2)
  - EYE OPERATION [None]
  - VISUAL ACUITY REDUCED [None]
